FAERS Safety Report 4961646-5 (Version None)
Quarter: 2006Q1

REPORT INFORMATION
  Report Type: 
  Country: None (occurrence: None)
  Receive Date: 20060329
  Receipt Date: 20060317
  Transmission Date: 20060701
  Serious: Yes (Death, Life-Threatening)
  Sender: FDA-Public Use
  Company Number: 2006JP000553

PATIENT
  Age: 77 Year
  Sex: Male
  Weight: 50 kg

DRUGS (11)
  1. FUNGUARD(MICAFUNGIN) INJECTION [Suspect]
     Indication: FUNGAL INFECTION
     Dosage: 150 MG, UNKNOWN/D, IV DRIP
     Route: 041
     Dates: start: 20060123, end: 20060127
  2. CEFTAZIDIME [Concomitant]
  3. CARBENIN (BETAMIPRON, PANIPENEM) INJECTION [Concomitant]
  4. NEO-MINOPHAGEN C (GLYCYRRHIZIC ACID, AMMONIUM SALT) INJECTION [Concomitant]
  5. GRAN (FILGRASTIM) INJECTION [Concomitant]
  6. SOLU-MEDROL (METHYLPREDNISOLONGE SODIUM SUCCINATE) INJECTION [Concomitant]
  7. FOY (GABEXATE MESILATE) INJECTION [Concomitant]
  8. RITUXAN [Concomitant]
  9. FILDESIN (VINDESINE SULFATE) INJECTION [Concomitant]
  10. CYCLOPHOSPHAMIDE [Concomitant]
  11. PREDNISOLONE [Concomitant]

REACTIONS (10)
  - ANAEMIA [None]
  - BLOOD LACTATE DEHYDROGENASE INCREASED [None]
  - BLOOD PRESSURE SYSTOLIC DECREASED [None]
  - BREATH SOUNDS ABNORMAL [None]
  - CONDITION AGGRAVATED [None]
  - HEPATIC FAILURE [None]
  - HEPATIC STEATOSIS [None]
  - LIVER DISORDER [None]
  - LYMPHOMA [None]
  - OEDEMA PERIPHERAL [None]
